FAERS Safety Report 5694864-1 (Version None)
Quarter: 2008Q2

REPORT INFORMATION
  Report Type: 
  Country: None (occurrence: None)
  Receive Date: 20080404
  Receipt Date: 20080104
  Transmission Date: 20081010
  Serious: No
  Sender: FDA-Public Use
  Company Number: A0701448A

PATIENT
  Age: 58 Year
  Sex: Female

DRUGS (5)
  1. ADVAIR HFA [Suspect]
     Indication: ASTHMA
     Route: 055
     Dates: start: 20071201
  2. TRAZODONE HCL [Concomitant]
  3. ATENOLOL [Concomitant]
  4. ZETIA [Concomitant]
  5. BENADRYL [Concomitant]

REACTIONS (1)
  - RASH PRURITIC [None]
